FAERS Safety Report 18605937 (Version 1)
Quarter: 2020Q4

REPORT INFORMATION
  Report Type: Other
  Country: DE (occurrence: DE)
  Receive Date: 20201211
  Receipt Date: 20201211
  Transmission Date: 20210114
  Serious: No
  Sender: FDA-Public Use
  Company Number: DE-LUPIN PHARMACEUTICALS INC.-2020-09718

PATIENT
  Age: 51 Year
  Sex: Female

DRUGS (4)
  1. METAMIZOLE [Concomitant]
     Active Substance: METAMIZOLE
     Indication: PAIN
     Dosage: 3 GRAM, QD (3 G GRAM(S) EVERY DAYS 3 SEPARATED DOSES)
     Route: 048
  2. DULOXETINE. [Suspect]
     Active Substance: DULOXETINE
     Indication: PRODUCT USED FOR UNKNOWN INDICATION
     Dosage: 30 MILLIGRAM
     Route: 048
  3. AMITRIPTYLIN [Concomitant]
     Active Substance: AMITRIPTYLINE
     Indication: SLEEP DISORDER
     Dosage: 25 MILLIGRAM
     Route: 065
  4. TRAMADOL. [Concomitant]
     Active Substance: TRAMADOL
     Indication: PAIN
     Dosage: 400 MILLIGRAM, QD (400 MG MILLGRAM(S) EVERY DAYS 2 SEPARATED DOSES)
     Route: 048

REACTIONS (1)
  - Restless legs syndrome [Recovered/Resolved]

NARRATIVE: CASE EVENT DATE: 2019
